FAERS Safety Report 8436244-1 (Version None)
Quarter: 2012Q2

REPORT INFORMATION
  Report Type: 
  Country: None (occurrence: None)
  Receive Date: 20120614
  Receipt Date: 20120607
  Transmission Date: 20120825
  Serious: Yes (Death, Hospitalization)
  Sender: FDA-Public Use
  Company Number: DE-ROCHE-772429

PATIENT
  Sex: Male
  Weight: 54 kg

DRUGS (10)
  1. TAMSULOSIN HCL [Concomitant]
  2. IRENAT [Concomitant]
  3. AVASTIN [Suspect]
     Indication: METASTATIC RENAL CELL CARCINOMA
     Dosage: THERAPY DURATION : 12 MONTH
     Route: 065
     Dates: start: 20100202, end: 20110215
  4. SULFASALAZINE [Concomitant]
     Dates: start: 20100106
  5. AVASTIN [Suspect]
     Dosage: THERAPY DURATION : 12 MONTH
     Route: 065
  6. EVEROLIMUS AND EVEROLIMUS [Suspect]
     Indication: METASTATIC RENAL CELL CARCINOMA
     Route: 048
     Dates: start: 20100202, end: 20110227
  7. CALCIUM CARBONATE/CHOLECALCIFEROL [Concomitant]
  8. CALCIUM D3 [Concomitant]
     Dates: start: 20100106
  9. PANTOPRAZOLE [Concomitant]
  10. PREDNISOLONE [Concomitant]

REACTIONS (5)
  - CONVULSION [None]
  - CARDIAC FAILURE [None]
  - HYPERTENSIVE CRISIS [None]
  - CEREBRAL INFARCTION [None]
  - HEADACHE [None]
